FAERS Safety Report 22093492 (Version 1)
Quarter: 2023Q1

REPORT INFORMATION
  Report Type: Spontaneous
  Country: GB (occurrence: None)
  Receive Date: 20230314
  Receipt Date: 20230314
  Transmission Date: 20230418
  Serious: Yes (Life-Threatening)
  Sender: FDA-Public Use
  Company Number: 2023A058049

PATIENT
  Age: 75 Year
  Sex: Female
  Weight: 56 kg

DRUGS (7)
  1. DAPAGLIFLOZIN [Suspect]
     Active Substance: DAPAGLIFLOZIN
     Indication: Type 2 diabetes mellitus
     Route: 048
     Dates: start: 20221212, end: 20230225
  2. ALOGLIPTIN [Concomitant]
     Active Substance: ALOGLIPTIN
  3. METFORMIN [Concomitant]
     Active Substance: METFORMIN HYDROCHLORIDE
  4. ATORVASTATIN [Concomitant]
     Active Substance: ATORVASTATIN
  5. DOCUSATE [Concomitant]
     Active Substance: DOCUSATE
  6. FOLIC ACID [Concomitant]
     Active Substance: FOLIC ACID
  7. LISINOPRIL [Concomitant]
     Active Substance: LISINOPRIL

REACTIONS (8)
  - Constipation [Recovered/Resolved]
  - Euglycaemic diabetic ketoacidosis [Recovering/Resolving]
  - Proctitis [Unknown]
  - Confusional state [Unknown]
  - Atrial fibrillation [Unknown]
  - Dehydration [Unknown]
  - Fatigue [Unknown]
  - Somnolence [Unknown]

NARRATIVE: CASE EVENT DATE: 20230224
